FAERS Safety Report 6376384-4 (Version None)
Quarter: 2009Q3

REPORT INFORMATION
  Report Type: 
  Country: None (occurrence: None)
  Receive Date: 20090925
  Receipt Date: 20090918
  Transmission Date: 20100115
  Serious: Yes (Hospitalization)
  Sender: FDA-Public Use
  Company Number: US-WYE-H11080609

PATIENT
  Age: 54 Year
  Sex: Female

DRUGS (1)
  1. PRISTIQ [Suspect]
     Indication: DEPRESSION
     Route: 048
     Dates: start: 20090201, end: 20090501

REACTIONS (9)
  - AMNESIA [None]
  - BLOOD PRESSURE DECREASED [None]
  - HOT FLUSH [None]
  - HYPERHIDROSIS [None]
  - MALAISE [None]
  - PALLOR [None]
  - PALPITATIONS [None]
  - UTERINE SPASM [None]
  - VAGINAL HAEMORRHAGE [None]
